FAERS Safety Report 19959403 (Version 1)
Quarter: 2021Q4

REPORT INFORMATION
  Report Type: Spontaneous
  Country: RO (occurrence: RO)
  Receive Date: 20211015
  Receipt Date: 20211015
  Transmission Date: 20220303
  Serious: Yes (Hospitalization, Other)
  Sender: FDA-Public Use
  Company Number: RO-MLMSERVICE-20210927-3129263-1

PATIENT
  Age: 35 Year
  Sex: Female

DRUGS (1)
  1. LEVONORGESTREL [Suspect]
     Active Substance: LEVONORGESTREL
     Indication: Intrauterine contraception
     Dosage: UNK
     Route: 015

REACTIONS (5)
  - Iridocyclitis [Recovered/Resolved]
  - Deafness [Recovered/Resolved]
  - Papilloedema [Recovered/Resolved]
  - Retinal vasculitis [Recovered/Resolved]
  - Headache [Recovered/Resolved]
